FAERS Safety Report 8339562-0 (Version None)
Quarter: 2012Q2

REPORT INFORMATION
  Report Type: 
  Country: None (occurrence: None)
  Receive Date: 20120507
  Receipt Date: 20120501
  Transmission Date: 20120825
  Serious: Yes (Hospitalization)
  Sender: FDA-Public Use
  Company Number: PHFR2011GB05296

PATIENT
  Sex: Male

DRUGS (4)
  1. HYOSCINE HYDROBROMIDE [Concomitant]
     Indication: SALIVARY HYPERSECRETION
     Dosage: 300 UG, PRN
     Dates: start: 20110613
  2. VENLAFAXINE [Concomitant]
     Indication: DEPRESSED MOOD
     Dosage: 225 MG,
     Route: 048
     Dates: start: 20110117
  3. CLOZARIL [Suspect]
     Dosage: 375 MG,
     Route: 048
  4. CLOZARIL [Suspect]
     Indication: SCHIZOPHRENIA, PARANOID TYPE
     Dosage: 375 MG,
     Route: 048
     Dates: start: 20110509

REACTIONS (1)
  - APPENDICITIS [None]
